FAERS Safety Report 9685376 (Version 1)
Quarter: 2013Q4

REPORT INFORMATION
  Report Type: Spontaneous
  Country: US (occurrence: US)
  Receive Date: 20131113
  Receipt Date: 20131113
  Transmission Date: 20140711
  Serious: Yes (Other)
  Sender: FDA-Public Use
  Company Number: US-JNJFOC-20131105201

PATIENT
  Age: 53 Year
  Sex: Male
  Weight: 46 kg

DRUGS (12)
  1. XARELTO [Suspect]
     Indication: DEEP VEIN THROMBOSIS
     Route: 048
  2. XARELTO [Suspect]
     Indication: DEEP VEIN THROMBOSIS
     Route: 048
     Dates: start: 20131105, end: 20131106
  3. FLUCONAZOLE [Suspect]
     Indication: PRODUCT USED FOR UNKNOWN INDICATION
     Route: 065
     Dates: end: 20131105
  4. COUMADIN [Suspect]
     Indication: PRODUCT USED FOR UNKNOWN INDICATION
     Route: 065
     Dates: end: 20131103
  5. METRONIDAZOLE [Suspect]
     Indication: PRODUCT USED FOR UNKNOWN INDICATION
     Route: 065
     Dates: end: 20131106
  6. CEFEPIME [Suspect]
     Indication: PRODUCT USED FOR UNKNOWN INDICATION
     Route: 065
     Dates: end: 20131106
  7. PROTONIX [Concomitant]
     Route: 065
  8. PREDNISONE [Concomitant]
     Route: 065
  9. SINGULAIR [Concomitant]
     Route: 065
  10. LISINOPRIL [Concomitant]
     Route: 065
  11. LASIX [Concomitant]
     Route: 065
  12. CLONIDINE [Concomitant]
     Route: 065

REACTIONS (1)
  - International normalised ratio increased [Recovering/Resolving]
